FAERS Safety Report 7612134-9 (Version None)
Quarter: 2011Q3

REPORT INFORMATION
  Report Type: 
  Country: None (occurrence: None)
  Receive Date: 20110715
  Receipt Date: 20110714
  Transmission Date: 20111222
  Serious: Yes (Hospitalization)
  Sender: FDA-Public Use
  Company Number: US-GILEAD-2011-0041658

PATIENT
  Sex: Female

DRUGS (3)
  1. RANEXA [Suspect]
  2. SIMVASTATIN [Concomitant]
  3. RANEXA [Suspect]
     Indication: ANGINA PECTORIS

REACTIONS (3)
  - MYALGIA [None]
  - DYSURIA [None]
  - RENAL DISORDER [None]
